FAERS Safety Report 9640938 (Version 1)
Quarter: 2013Q4

REPORT INFORMATION
  Report Type: Spontaneous
  Country: GB (occurrence: None)
  Receive Date: 20131021
  Receipt Date: 20131021
  Transmission Date: 20140711
  Serious: Yes (Life-Threatening, Other)
  Sender: FDA-Public Use
  Company Number: GB-AIKEM-000195

PATIENT
  Age: 33 Year
  Sex: Male
  Weight: 70 kg

DRUGS (4)
  1. QUETIAPINE [Suspect]
     Indication: MAJOR DEPRESSION
     Route: 048
     Dates: start: 20130503
  2. AMITRIPTYLINE [Suspect]
     Indication: DEPRESSION
     Route: 048
     Dates: start: 20130503, end: 20130515
  3. TEMAZEPAM(TEMAZEPAM) [Concomitant]
  4. CITALOPRAM(CITALOPRAM) [Concomitant]

REACTIONS (4)
  - Deep vein thrombosis [None]
  - Pulmonary embolism [None]
  - Atelectasis [None]
  - Bundle branch block [None]
